FAERS Safety Report 14668231 (Version 4)
Quarter: 2019Q1

REPORT INFORMATION
  Report Type: Spontaneous
  Country: US (occurrence: US)
  Receive Date: 20180322
  Receipt Date: 20190124
  Transmission Date: 20190417
  Serious: No
  Sender: FDA-Public Use
  Company Number: US-JNJFOC-20180313403

PATIENT
  Age: 28 Year
  Sex: Female
  Weight: 54.43 kg

DRUGS (2)
  1. FENTANYL. [Suspect]
     Active Substance: FENTANYL
     Indication: RENAL PAIN
     Route: 062
     Dates: start: 201801, end: 201802
  2. FENTANYL. [Suspect]
     Active Substance: FENTANYL
     Indication: RENAL PAIN
     Route: 062
     Dates: start: 201802

REACTIONS (1)
  - Drug ineffective [Unknown]

NARRATIVE: CASE EVENT DATE: 201801
